FAERS Safety Report 24043012 (Version 1)
Quarter: 2024Q3

REPORT INFORMATION
  Report Type: Report from Study
  Country: US (occurrence: US)
  Receive Date: 20240702
  Receipt Date: 20240702
  Transmission Date: 20241016
  Serious: Yes (Other)
  Sender: EISAI
  Company Number: US-Eisai-EC-2024-168288

PATIENT
  Age: 66 Year
  Sex: Male
  Weight: 67.2 kg

DRUGS (2)
  1. LEQEMBI [Suspect]
     Active Substance: LECANEMAB-IRMB
     Indication: Product used for unknown indication
     Dosage: FREQUENCY UNKNOWN
     Route: 042
     Dates: start: 20240321
  2. LEQEMBI [Suspect]
     Active Substance: LECANEMAB-IRMB
     Dosage: FREQUENCY UNKNOWN
     Route: 042
     Dates: start: 20240530, end: 20240530

REACTIONS (3)
  - Haemorrhagic stroke [Not Recovered/Not Resolved]
  - Ischaemic stroke [Not Recovered/Not Resolved]
  - Amyloid related imaging abnormality-microhaemorrhages and haemosiderin deposits [Not Recovered/Not Resolved]

NARRATIVE: CASE EVENT DATE: 20240610
